FAERS Safety Report 8988574 (Version 1)
Quarter: 2012Q4

REPORT INFORMATION
  Report Type: Spontaneous
  Country: US (occurrence: None)
  Receive Date: 20121218
  Receipt Date: 20121218
  Transmission Date: 20130627
  Serious: Yes (Other)
  Sender: FDA-Public Use
  Company Number: 2012P1066549

PATIENT
  Age: 37 Year
  Sex: Female

DRUGS (2)
  1. INFUMORPH [Suspect]
     Indication: FAILED BACK SURGERY SYNDROME
  2. INFUMORPH [Suspect]
     Indication: SPINAL PAIN

REACTIONS (3)
  - Underdose [None]
  - Drug effect decreased [None]
  - Device leakage [None]
